FAERS Safety Report 11078115 (Version 3)
Quarter: 2015Q2

REPORT INFORMATION
  Report Type: Spontaneous
  Country: IT (occurrence: IT)
  Receive Date: 20150430
  Receipt Date: 20150615
  Transmission Date: 20150821
  Serious: Yes (Hospitalization)
  Sender: FDA-Public Use
  Company Number: IT-AMGEN-ITASP2015041095

PATIENT
  Age: 60 Year
  Sex: Male

DRUGS (7)
  1. MINIAS [Concomitant]
     Active Substance: LORMETAZEPAM
     Dosage: 10 DF, UNK
     Route: 048
  2. ENBREL [Suspect]
     Active Substance: ETANERCEPT
     Indication: PSORIASIS
     Dosage: 50 MG, WEEKLY
     Route: 058
     Dates: start: 20131118, end: 20141120
  3. ESKIM [Concomitant]
     Active Substance: OMEGA-3 FATTY ACIDS
     Dosage: 1000 MG, UNK
     Route: 048
  4. ASCRIPTIN [Concomitant]
     Active Substance: ASPIRIN
     Dosage: UNK
     Route: 048
  5. RANEXA [Concomitant]
     Active Substance: RANOLAZINE
     Dosage: 1500 MG, UNK
     Route: 048
  6. TOTALIP [Concomitant]
     Active Substance: ATORVASTATIN
     Dosage: UNK
     Route: 048
  7. SELES BETA [Concomitant]
     Active Substance: ATENOLOL
     Dosage: UNK
     Route: 048

REACTIONS (1)
  - Squamous cell carcinoma of lung [Unknown]

NARRATIVE: CASE EVENT DATE: 20141202
